FAERS Safety Report 17099679 (Version 1)
Quarter: 2019Q4

REPORT INFORMATION
  Report Type: Spontaneous
  Country: GR (occurrence: GR)
  Receive Date: 20191202
  Receipt Date: 20191202
  Transmission Date: 20200122
  Serious: Yes (Disabling)
  Sender: FDA-Public Use
  Company Number: GR-009507513-1911GRC010014

PATIENT
  Age: 57 Year
  Sex: Female
  Weight: 51 kg

DRUGS (1)
  1. CELESTONE CHRONODOSE [Suspect]
     Active Substance: BETAMETHASONE ACETATE\BETAMETHASONE SODIUM PHOSPHATE
     Indication: TENDON INJURY
     Dosage: UNK
     Route: 014
     Dates: start: 20181025, end: 20181025

REACTIONS (2)
  - Musculoskeletal pain [Not Recovered/Not Resolved]
  - Cataract [Not Recovered/Not Resolved]

NARRATIVE: CASE EVENT DATE: 20181025
